FAERS Safety Report 19484953 (Version 2)
Quarter: 2021Q3

REPORT INFORMATION
  Report Type: Spontaneous
  Country: US (occurrence: US)
  Receive Date: 20210702
  Receipt Date: 20210716
  Transmission Date: 20211014
  Serious: No
  Sender: FDA-Public Use
  Company Number: US-LUPIN PHARMACEUTICALS INC.-2021-10271

PATIENT
  Age: 22 Day
  Sex: Male
  Weight: 4.54 kg

DRUGS (1)
  1. FAMOTIDINE FOR ORAL SUSPENSION USP 40 MG/5ML [Suspect]
     Active Substance: FAMOTIDINE
     Indication: PRODUCT USED FOR UNKNOWN INDICATION
     Dosage: 2 MILLILITER, BID
     Route: 048
     Dates: start: 20210605, end: 202106

REACTIONS (3)
  - No adverse event [Unknown]
  - Product prescribing error [Unknown]
  - Overdose [Unknown]

NARRATIVE: CASE EVENT DATE: 202106
